FAERS Safety Report 9159493 (Version 1)
Quarter: 2013Q1

REPORT INFORMATION
  Report Type: Spontaneous
  Country: NL (occurrence: NL)
  Receive Date: 20130313
  Receipt Date: 20130313
  Transmission Date: 20140127
  Serious: Yes (Death)
  Sender: FDA-Public Use
  Company Number: PHHY2013NL024074

PATIENT
  Sex: Male

DRUGS (3)
  1. ACLASTA [Suspect]
     Indication: OSTEOPOROSIS
     Dosage: 5 MG (1 X PER 364 DAYS)
     Route: 042
     Dates: start: 20100322
  2. ACLASTA [Suspect]
     Dosage: 5 MG (1 X PER 364 DAYS)
     Route: 042
     Dates: start: 20110328
  3. ACLASTA [Suspect]
     Dosage: 5 MG (1 X PER 364 DAYS)
     Route: 042
     Dates: start: 20120404

REACTIONS (1)
  - Death [Fatal]
